FAERS Safety Report 6028477-9 (Version None)
Quarter: 2009Q1

REPORT INFORMATION
  Report Type: 
  Country: None (occurrence: None)
  Receive Date: 20090106
  Receipt Date: 20081223
  Transmission Date: 20090719
  Serious: Yes (Other)
  Sender: FDA-Public Use
  Company Number: IT-RB-007768-09

PATIENT
  Age: 40 Year
  Sex: Male

DRUGS (4)
  1. SUBUTEX [Suspect]
     Indication: DRUG DEPENDENCE
     Route: 060
     Dates: start: 20010313, end: 20010504
  2. AMINO ACIDS [Concomitant]
     Indication: DRUG USE FOR UNKNOWN INDICATION
     Dosage: DOSING INFORMATION UNKNOWN.
     Route: 065
  3. ANTIRETROVIRAL (NOS) [Suspect]
     Dosage: DOSING INFORMATION UNKNOWN.
     Route: 048
  4. BENZODIAZEPINE (NOS) [Suspect]
     Dosage: DOSING INFORMATION UNKNOWN.
     Route: 065

REACTIONS (1)
  - GYNAECOMASTIA [None]
